FAERS Safety Report 15846959 (Version 3)
Quarter: 2019Q1

REPORT INFORMATION
  Report Type: Spontaneous
  Country: FR (occurrence: FR)
  Receive Date: 20190121
  Receipt Date: 20190212
  Transmission Date: 20190417
  Serious: Yes (Other)
  Sender: FDA-Public Use
  Company Number: FR-UCBSA-2019002193

PATIENT
  Age: 0 Year
  Sex: Male

DRUGS (3)
  1. KEPPRA [Suspect]
     Active Substance: LEVETIRACETAM
     Indication: POST-TRAUMATIC EPILEPSY
     Dosage: 1000 MG DAILY
     Route: 064
     Dates: start: 20090204, end: 20091012
  2. URBANYL [Suspect]
     Active Substance: CLOBAZAM
     Indication: POST-TRAUMATIC EPILEPSY
     Dosage: 10 MG DAILY
     Route: 064
     Dates: start: 20090204, end: 20091012
  3. TEGRETOL [Suspect]
     Active Substance: CARBAMAZEPINE
     Indication: POST-TRAUMATIC EPILEPSY
     Dosage: 1000 MG DAILY
     Route: 064
     Dates: start: 20090204, end: 20091012

REACTIONS (3)
  - Aggression [Not Recovered/Not Resolved]
  - Dysgraphia [Not Recovered/Not Resolved]
  - Foetal exposure during pregnancy [Unknown]

NARRATIVE: CASE EVENT DATE: 20090204
